FAERS Safety Report 6355818-5 (Version None)
Quarter: 2009Q3

REPORT INFORMATION
  Report Type: 
  Country: None (occurrence: None)
  Receive Date: 20090915
  Receipt Date: 20071030
  Transmission Date: 20100115
  Serious: Yes (Death)
  Sender: FDA-Public Use
  Company Number: US-ASTRAZENECA-2007UW13170

PATIENT
  Age: 25074 Day
  Sex: Male
  Weight: 104.3 kg

DRUGS (4)
  1. SEROQUEL [Suspect]
     Indication: HALLUCINATION
     Route: 048
     Dates: start: 20040324
  2. SEROQUEL [Suspect]
     Dosage: 50 MG - 100 MG
     Route: 048
     Dates: start: 20040825
  3. REQUIP [Concomitant]
     Dosage: 6 MG - 9 MG
     Dates: start: 20031014
  4. ARICEPT [Concomitant]
     Dosage: 5 MG -10 MG
     Dates: start: 20041001

REACTIONS (5)
  - ARTERIOSCLEROSIS [None]
  - CARDIO-RESPIRATORY ARREST [None]
  - DIABETES MELLITUS [None]
  - HYPERTENSION [None]
  - TYPE 1 DIABETES MELLITUS [None]
